FAERS Safety Report 5265651-3 (Version None)
Quarter: 2007Q1

REPORT INFORMATION
  Report Type: 
  Country: None (occurrence: None)
  Receive Date: 20061213
  Receipt Date: 20050913
  Transmission Date: 20070707
  Serious: Yes (Other)
  Sender: FDA-Public Use
  Company Number: 2005UW13556

PATIENT
  Age: 74 Year
  Sex: Male
  Weight: 86.182 kg

DRUGS (1)
  1. IRESSA [Suspect]
     Indication: NON-SMALL CELL LUNG CANCER
     Dates: start: 20031101

REACTIONS (2)
  - RASH [None]
  - TONGUE ULCERATION [None]
